FAERS Safety Report 7471057-9 (Version None)
Quarter: 2011Q2

REPORT INFORMATION
  Report Type: 
  Country: None (occurrence: None)
  Receive Date: 20110506
  Receipt Date: 20110506
  Transmission Date: 20111010
  Serious: Yes (Hospitalization, Disabling)
  Sender: FDA-Public Use
  Company Number: None

PATIENT
  Sex: Female
  Weight: 121.564 kg

DRUGS (2)
  1. ABILIFY [Suspect]
  2. CELEXA [Suspect]

REACTIONS (3)
  - DIARRHOEA [None]
  - HYPERSENSITIVITY [None]
  - TREMOR [None]
